FAERS Safety Report 5025866-6 (Version None)
Quarter: 2006Q2

REPORT INFORMATION
  Report Type: 
  Country: None (occurrence: None)
  Receive Date: 20060608
  Receipt Date: 20060524
  Transmission Date: 20061013
  Serious: Yes (Hospitalization)
  Sender: FDA-Public Use
  Company Number: GXKR2006US03092

PATIENT
  Age: 79 Year
  Sex: Female

DRUGS (7)
  1. PAROXETINE HCL [Suspect]
     Indication: DEPRESSION
     Dosage: 10 MG/DAY,
  2. RISPERIDONE [Suspect]
     Dosage: 0.25 MG, ORAL
     Route: 048
  3. GALANTAMINE HYDROBROMIDE [Suspect]
     Dosage: 8 MG - 0 MG - 4 MG,
  4. AMLODIPINE [Concomitant]
  5. DOCUSATE SODIUM (DOCUSATE SODIUM) [Concomitant]
  6. CELECOXIB (CELECOXIB) [Concomitant]
  7. CALCIUM CITRATE (CALCIUM CITRATE) [Concomitant]

REACTIONS (8)
  - CEREBRAL ATROPHY [None]
  - DRUG INTERACTION [None]
  - HYPOTHERMIA [None]
  - LETHARGY [None]
  - MENTAL STATUS CHANGES [None]
  - MUCOUS MEMBRANE DISORDER [None]
  - ORAL INTAKE REDUCED [None]
  - THROMBOCYTOPENIA [None]
